FAERS Safety Report 14021736 (Version 3)
Quarter: 2018Q1

REPORT INFORMATION
  Report Type: Report from Study
  Country: US (occurrence: US)
  Receive Date: 20170928
  Receipt Date: 20180327
  Transmission Date: 20180508
  Serious: No
  Sender: FDA-Public Use
  Company Number: US-CLOVIS ONCOLOGY-CLO-2017-000782

PATIENT
  Age: 73 Year
  Sex: Female

DRUGS (1)
  1. RUBRACA [Suspect]
     Active Substance: RUCAPARIB CAMSYLATE
     Indication: OVARIAN CANCER
     Dosage: 600 MG, BID
     Route: 048
     Dates: start: 20170703

REACTIONS (28)
  - Flushing [Unknown]
  - Feeling abnormal [Unknown]
  - Chills [Unknown]
  - Red blood cell count decreased [Not Recovered/Not Resolved]
  - Sinusitis [Recovering/Resolving]
  - Temporomandibular joint syndrome [Unknown]
  - Increased appetite [Unknown]
  - White blood cell count decreased [Not Recovered/Not Resolved]
  - Platelet count decreased [Not Recovered/Not Resolved]
  - Carbohydrate antigen 125 increased [Unknown]
  - Nausea [Unknown]
  - Dizziness [Unknown]
  - Drug dose omission [Unknown]
  - Back pain [Recovering/Resolving]
  - Malignant neoplasm progression [Unknown]
  - Discoloured vomit [Recovered/Resolved]
  - Oropharyngeal pain [Unknown]
  - Diarrhoea [Unknown]
  - Paranasal sinus hypersecretion [Unknown]
  - Ear lobe infection [Unknown]
  - Vomiting [Recovered/Resolved]
  - Joint swelling [Recovering/Resolving]
  - Cough [Unknown]
  - Poor peripheral circulation [Unknown]
  - Hypersensitivity [Unknown]
  - Sinus disorder [Unknown]
  - Fatigue [Not Recovered/Not Resolved]
  - Erythema [Unknown]

NARRATIVE: CASE EVENT DATE: 2017
